FAERS Safety Report 8366628-1 (Version None)
Quarter: 2012Q2

REPORT INFORMATION
  Report Type: 
  Country: None (occurrence: None)
  Receive Date: 20120517
  Receipt Date: 20120511
  Transmission Date: 20120825
  Serious: Yes (Hospitalization)
  Sender: FDA-Public Use
  Company Number: US-BAYER-2012-048139

PATIENT
  Age: 26 Year
  Sex: Female
  Weight: 129.25 kg

DRUGS (9)
  1. ORAL CONTRACEPTIVE NOS [Concomitant]
  2. VICODIN [Concomitant]
     Indication: PELVIC PAIN
     Dosage: 5-500 MG, AS NEEDE QD
     Route: 048
     Dates: start: 20110201
  3. PROMETHAZINE [Concomitant]
     Dosage: 25 MG, UNK
     Dates: start: 20110212
  4. DROSPIRENONE AND ETHINYL ESTRADIOL [Suspect]
     Dosage: UNK
     Dates: start: 20110201
  5. ULTRAM [Concomitant]
     Indication: PAIN
     Dosage: 50 MG, EVERY 4 HOURS, PRN
  6. VICODIN [Concomitant]
     Dosage: UNK
     Dates: start: 20110208, end: 20110212
  7. YASMIN [Suspect]
     Dosage: UNK
     Dates: start: 20110101
  8. TRAMADOL HYDROCHLORIDE [Concomitant]
     Indication: PAIN
     Dosage: 50 MG, EVERY 4 HOUR, PRN
  9. IBUPROFEN [Concomitant]
     Indication: PELVIC PAIN
     Dosage: 800 MG, UNK
     Route: 048
     Dates: start: 20110522

REACTIONS (1)
  - DEEP VEIN THROMBOSIS [None]
